FAERS Safety Report 13733982 (Version 1)
Quarter: 2017Q3

REPORT INFORMATION
  Report Type: Spontaneous
  Country: US (occurrence: US)
  Receive Date: 20170708
  Receipt Date: 20170708
  Transmission Date: 20171127
  Serious: No
  Sender: FDA-Public Use
  Company Number: PHEH2017US020582

PATIENT
  Sex: Male

DRUGS (1)
  1. AFINITOR [Suspect]
     Active Substance: EVEROLIMUS
     Indication: NERVOUS SYSTEM DISORDER
     Dosage: 10 MG, QD
     Route: 048
     Dates: start: 20170511

REACTIONS (2)
  - Mental status changes [Unknown]
  - Epistaxis [Unknown]
